FAERS Safety Report 17495588 (Version 1)
Quarter: 2020Q1

REPORT INFORMATION
  Report Type: Spontaneous
  Country: US (occurrence: US)
  Receive Date: 20200303
  Receipt Date: 20200303
  Transmission Date: 20200409
  Serious: Yes (Other)
  Sender: FDA-Public Use
  Company Number: US-BIODELIVERY SCIENCES INTERNATIONAL-2019BDSI0933

PATIENT
  Sex: Male
  Weight: 79.45 kg

DRUGS (1)
  1. BUPRENORPHINE. [Suspect]
     Active Substance: BUPRENORPHINE
     Indication: PAIN
     Dosage: UNKNOWN, UNKNOWN
     Route: 002

REACTIONS (4)
  - Drug withdrawal syndrome [Recovered/Resolved]
  - Oral administration complication [Unknown]
  - Product adhesion issue [Unknown]
  - Drug ineffective [Unknown]
